FAERS Safety Report 8591168-4 (Version None)
Quarter: 2012Q3

REPORT INFORMATION
  Report Type: 
  Country: None (occurrence: None)
  Receive Date: 20120813
  Receipt Date: 20120806
  Transmission Date: 20120928
  Serious: Yes (Hospitalization)
  Sender: FDA-Public Use
  Company Number: US-TEVA-352854USA

PATIENT
  Sex: Female

DRUGS (5)
  1. NORVASC [Concomitant]
     Indication: HYPERTENSION
  2. TRIAMIZINE [Concomitant]
  3. METOPROLOL [Concomitant]
  4. PROAIR HFA [Suspect]
     Indication: CHRONIC OBSTRUCTIVE PULMONARY DISEASE
  5. STEROID (NOS) [Suspect]

REACTIONS (2)
  - GASTRIC PERFORATION [None]
  - ABDOMINAL PAIN UPPER [None]
